FAERS Safety Report 4666430-8 (Version None)
Quarter: 2005Q2

REPORT INFORMATION
  Report Type: 
  Country: None (occurrence: None)
  Receive Date: 20050517
  Receipt Date: 20050502
  Transmission Date: 20051028
  Serious: Yes (Hospitalization)
  Sender: FDA-Public Use
  Company Number: S05-USA-02258-01

PATIENT
  Age: 41 Year
  Sex: Female

DRUGS (5)
  1. LEXAPRO [Suspect]
     Indication: DEPRESSION
     Dosage: 10 MG QD PO
     Route: 048
     Dates: start: 20050420, end: 20050421
  2. METADATE (METHYLPHENIDATE) [Concomitant]
  3. PROTONIX [Concomitant]
  4. NASACORT [Concomitant]
  5. ZYRTEC D (CETIRIZINE/PSUDOEPHEDRINE) [Concomitant]

REACTIONS (8)
  - BLOOD PRESSURE DECREASED [None]
  - DRY SKIN [None]
  - FATIGUE [None]
  - FEELING ABNORMAL [None]
  - GAIT DISTURBANCE [None]
  - HEART RATE DECREASED [None]
  - INCOHERENT [None]
  - NAUSEA [None]
